FAERS Safety Report 7287473-4 (Version None)
Quarter: 2011Q1

REPORT INFORMATION
  Report Type: 
  Country: None (occurrence: None)
  Receive Date: 20110211
  Receipt Date: 20110201
  Transmission Date: 20110831
  Serious: Yes (Other)
  Sender: FDA-Public Use
  Company Number: CA-JNJFOC-20100600233

PATIENT
  Sex: Female
  Weight: 99 kg

DRUGS (1)
  1. REMICADE [Suspect]
     Indication: HIDRADENITIS
     Route: 042

REACTIONS (5)
  - INFUSION RELATED REACTION [None]
  - BLOOD PRESSURE INCREASED [None]
  - NAUSEA [None]
  - HYPERHIDROSIS [None]
  - HEART RATE INCREASED [None]
